FAERS Safety Report 21325056 (Version 3)
Quarter: 2023Q1

REPORT INFORMATION
  Report Type: Spontaneous
  Country: EC (occurrence: EC)
  Receive Date: 20220912
  Receipt Date: 20230208
  Transmission Date: 20230418
  Serious: Yes (Other)
  Sender: FDA-Public Use
  Company Number: EC-BoehringerIngelheim-2022-BI-191421

PATIENT
  Age: 32 Year
  Sex: Male
  Weight: 99 kg

DRUGS (2)
  1. JARDIANCE [Suspect]
     Active Substance: EMPAGLIFLOZIN
     Indication: Insulin resistance
     Route: 048
     Dates: start: 20220719, end: 20220817
  2. LEVOTHYROXINE SODIUM [Concomitant]
     Active Substance: LEVOTHYROXINE SODIUM
     Indication: Hypothyroidism
     Route: 048
     Dates: start: 2007

REACTIONS (7)
  - Testicular abscess [Recovered/Resolved]
  - Intentional product use issue [Recovered/Resolved]
  - Balanoposthitis [Recovered/Resolved]
  - Anorectal disorder [Recovered/Resolved]
  - Haemorrhage [Recovered/Resolved]
  - Testicular pain [Recovered/Resolved]
  - Orchitis [Not Recovered/Not Resolved]

NARRATIVE: CASE EVENT DATE: 20220719
